FAERS Safety Report 8167708-6 (Version None)
Quarter: 2012Q1

REPORT INFORMATION
  Report Type: 
  Country: None (occurrence: None)
  Receive Date: 20120227
  Receipt Date: 20120220
  Transmission Date: 20120608
  Serious: Yes (Other)
  Sender: FDA-Public Use
  Company Number: GB-JNJFOC-20110909549

PATIENT
  Sex: Female

DRUGS (4)
  1. PREZISTA [Suspect]
     Indication: HIV INFECTION
     Route: 048
     Dates: start: 20110801, end: 20110922
  2. RAMIPRIL [Concomitant]
     Indication: BLOOD PRESSURE INCREASED
     Route: 048
  3. RITONAVIR [Concomitant]
     Indication: HIV INFECTION
     Route: 065
     Dates: start: 20110801, end: 20110922
  4. ATORVASTATIN [Concomitant]
     Indication: LIPIDS INCREASED
     Route: 048

REACTIONS (5)
  - OEDEMA PERIPHERAL [None]
  - RENAL FAILURE [None]
  - OFF LABEL USE [None]
  - PULMONARY OEDEMA [None]
  - NEPHROPATHY TOXIC [None]
